FAERS Safety Report 13177048 (Version 1)
Quarter: 2017Q1

REPORT INFORMATION
  Report Type: Report from Study
  Country: US (occurrence: US)
  Receive Date: 20170201
  Receipt Date: 20170201
  Transmission Date: 20170428
  Serious: No
  Sender: FDA-Public Use
  Company Number: US-EXELIXIS-CABO-16006978

PATIENT
  Sex: Male

DRUGS (5)
  1. WARFARIN [Concomitant]
     Active Substance: WARFARIN
  2. FUROSEMIDE. [Concomitant]
     Active Substance: FUROSEMIDE
  3. COMETRIQ [Suspect]
     Active Substance: CABOZANTINIB S-MALATE
     Dosage: 40 MG, QD
     Route: 048
     Dates: start: 20160620
  4. ACYCLOVIR. [Concomitant]
     Active Substance: ACYCLOVIR
  5. COMETRIQ [Suspect]
     Active Substance: CABOZANTINIB S-MALATE
     Indication: CHRONIC LYMPHOCYTIC LEUKAEMIA
     Dosage: 60 MG, QD
     Route: 048
     Dates: start: 20160329, end: 201606

REACTIONS (3)
  - Skin cancer [Unknown]
  - Off label use [Unknown]
  - Localised infection [Unknown]
